FAERS Safety Report 7095266-6 (Version None)
Quarter: 2010Q4

REPORT INFORMATION
  Report Type: 
  Country: None (occurrence: None)
  Receive Date: 20101111
  Receipt Date: 20101020
  Transmission Date: 20110411
  Serious: Yes (Hospitalization)
  Sender: FDA-Public Use
  Company Number: US-BAYER-201023005NA

PATIENT
  Age: 35 Year
  Sex: Female
  Weight: 107 kg

DRUGS (15)
  1. YASMIN [Suspect]
     Indication: CONTRACEPTION
     Route: 048
     Dates: start: 20020101, end: 20080601
  2. OCELLA [Suspect]
     Indication: CONTRACEPTION
     Dates: start: 20080701, end: 20090901
  3. HYOSCYAMINE [Concomitant]
  4. ALEVE (CAPLET) [Concomitant]
  5. PHENERGAN [Concomitant]
  6. XANAX [Concomitant]
  7. AMBIEN [Concomitant]
     Dates: start: 20080101
  8. LEXAPRO [Concomitant]
     Dates: start: 20090101
  9. AZOL [Concomitant]
     Dates: start: 20100101
  10. PRAVASTATIN [Concomitant]
     Dates: start: 20100101
  11. NSAIDS NOS [Concomitant]
  12. DIET MEDICATIONS NOS [Concomitant]
  13. PULMOCORT INHALER [Concomitant]
  14. VICODIN [Concomitant]
  15. ELAVIL [Concomitant]

REACTIONS (7)
  - ABDOMINAL PAIN [None]
  - CHOLECYSTITIS CHRONIC [None]
  - CHOLELITHIASIS [None]
  - KELOID SCAR [None]
  - NAUSEA [None]
  - PERITONITIS [None]
  - VOMITING [None]
